FAERS Safety Report 7318350-8 (Version None)
Quarter: 2011Q1

REPORT INFORMATION
  Report Type: 
  Country: None (occurrence: None)
  Receive Date: 20110218
  Receipt Date: 20110218
  Transmission Date: 20110831
  Serious: Yes (Hospitalization)
  Sender: FDA-Public Use
  Company Number: None

PATIENT
  Age: 55 Year
  Sex: Male

DRUGS (10)
  1. ZOFRAN [Concomitant]
  2. NORCO [Concomitant]
  3. CELEBREX [Concomitant]
  4. AMBIEN [Concomitant]
  5. ATENOLOL [Concomitant]
  6. COLACE [Concomitant]
  7. VICODIN [Concomitant]
  8. LOVENOX [Suspect]
     Indication: THROMBOSIS PROPHYLAXIS
     Dosage: 30MG Q12H SQ
     Route: 058
  9. OXYCONTIN [Concomitant]
  10. SIMVASTATIN [Concomitant]

REACTIONS (4)
  - THROMBOSIS [None]
  - DRUG HYPERSENSITIVITY [None]
  - DEEP VEIN THROMBOSIS [None]
  - HEPARIN-INDUCED THROMBOCYTOPENIA [None]
